FAERS Safety Report 10481948 (Version 2)
Quarter: 2014Q3

REPORT INFORMATION
  Report Type: Spontaneous
  Country: IT (occurrence: IT)
  Receive Date: 20140929
  Receipt Date: 20140929
  Transmission Date: 20150326
  Serious: Yes (Other)
  Sender: FDA-Public Use
  Company Number: IT-US-EMD SERONO, INC.-7320943

PATIENT
  Sex: Female
  Weight: 56 kg

DRUGS (3)
  1. AVONEX [Suspect]
     Active Substance: INTERFERON BETA-1A
     Indication: MULTIPLE SCLEROSIS
     Dosage: DRUG RESTARTED
     Route: 030
     Dates: start: 20130501
  2. REBIF [Suspect]
     Active Substance: INTERFERON BETA-1A
     Indication: MULTIPLE SCLEROSIS
     Dates: start: 20100101, end: 20130430
  3. AVONEX [Suspect]
     Active Substance: INTERFERON BETA-1A
     Route: 030
     Dates: start: 20000101, end: 20091231

REACTIONS (4)
  - Oedema [Recovering/Resolving]
  - Bronchospasm [Recovering/Resolving]
  - Rhinitis allergic [Recovering/Resolving]
  - Lip oedema [Recovering/Resolving]
